FAERS Safety Report 4910956-6 (Version None)
Quarter: 2006Q1

REPORT INFORMATION
  Report Type: 
  Country: None (occurrence: None)
  Receive Date: 20060214
  Receipt Date: 20060106
  Transmission Date: 20060701
  Serious: Yes (Hospitalization, Disabling)
  Sender: FDA-Public Use
  Company Number: US-MERCK-0601USA00823

PATIENT
  Age: 52 Year
  Sex: Male
  Weight: 136 kg

DRUGS (7)
  1. VIOXX [Suspect]
     Indication: PAIN
     Route: 048
     Dates: start: 20020521, end: 20040901
  2. GLUCOVANCE [Concomitant]
     Route: 065
  3. ACIPHEX [Concomitant]
     Route: 065
  4. LOTENSIN [Concomitant]
     Route: 065
  5. LEVAQUIN [Concomitant]
     Route: 065
  6. LISINOPRIL [Concomitant]
     Route: 065
  7. PROMETHAZINE [Concomitant]
     Route: 048

REACTIONS (1)
  - MYOCARDIAL INFARCTION [None]
